FAERS Safety Report 15516317 (Version 1)
Quarter: 2018Q4

REPORT INFORMATION
  Report Type: Spontaneous
  Country: US (occurrence: US)
  Receive Date: 20181017
  Receipt Date: 20181017
  Transmission Date: 20190205
  Serious: Yes (Other)
  Sender: FDA-Public Use
  Company Number: US-MYLANLABS-2018M1074594

PATIENT
  Age: 7 Decade
  Sex: Male
  Weight: 79 kg

DRUGS (5)
  1. XARELTO [Suspect]
     Active Substance: RIVAROXABAN
     Dosage: RESTARTED ON RIVAROXABAN THERAPY AFTER ONE YEAR
     Route: 048
  2. XARELTO [Suspect]
     Active Substance: RIVAROXABAN
     Indication: DEEP VEIN THROMBOSIS
     Dosage: 15 MG, UNK
     Route: 048
  3. ASPIRIN                            /00002701/ [Concomitant]
     Active Substance: ASPIRIN
     Indication: PRODUCT USED FOR UNKNOWN INDICATION
     Dosage: 1 YEAR WITH RIVAROXABAN FOLLOWED BY 2 MONTHS AS MONOTHERAPY
     Route: 048
  4. XARELTO [Suspect]
     Active Substance: RIVAROXABAN
     Dosage: 20 MG, QD
     Route: 048
  5. ESCITALOPRAM [Suspect]
     Active Substance: ESCITALOPRAM OXALATE
     Indication: DEPRESSION
     Dosage: EVERY OTHER DAY
     Route: 065

REACTIONS (2)
  - Deep vein thrombosis [Recovered/Resolved]
  - Drug ineffective [Unknown]
